FAERS Safety Report 7240260-5 (Version None)
Quarter: 2011Q1

REPORT INFORMATION
  Report Type: 
  Country: None (occurrence: None)
  Receive Date: 20110113
  Receipt Date: 20101228
  Transmission Date: 20110831
  Serious: Yes (Hospitalization)
  Sender: FDA-Public Use
  Company Number: 025012

PATIENT
  Sex: Female

DRUGS (11)
  1. CYANOCOBALAMIN [Concomitant]
  2. HYALURONATE SODIUM [Concomitant]
  3. CERTOLIZUMAB PEGOL (CERTOLIZUMAB PEGOL) [Suspect]
     Indication: RHEUMATOID ARTHRITIS
     Dosage: (200 MG 1X/2 WEEKS SUBCUTANEOUS)
     Route: 058
     Dates: start: 20091225, end: 20101110
  4. FERROUS SODIUM CITRATE [Concomitant]
  5. AZATHIOPRINE [Concomitant]
  6. INDOMETACIN [Concomitant]
  7. LANSOPRAZOLE [Concomitant]
  8. PREDNISOLONE [Concomitant]
  9. ALENDRONATE SODIUM [Concomitant]
  10. REBAMIPIDE [Concomitant]
  11. POLAPREZINC [Concomitant]

REACTIONS (2)
  - MELAENA [None]
  - DRUG EFFECT DECREASED [None]
